FAERS Safety Report 6345519-1 (Version None)
Quarter: 2009Q3

REPORT INFORMATION
  Report Type: 
  Country: None (occurrence: None)
  Receive Date: 20090909
  Receipt Date: 20090907
  Transmission Date: 20100115
  Serious: Yes (Other)
  Sender: FDA-Public Use
  Company Number: DE-BRISTOL-MYERS SQUIBB COMPANY-14760037

PATIENT
  Age: 45 Year
  Sex: Male
  Weight: 69 kg

DRUGS (2)
  1. ABILIFY [Suspect]
     Indication: SCHIZOPHRENIA
     Dosage: TAKEN 2.5 TO 5MG
     Route: 048
  2. ZYPREXA [Suspect]
     Indication: PSYCHOTIC DISORDER

REACTIONS (1)
  - CIRCULATORY COLLAPSE [None]
